FAERS Safety Report 6190164 (Version 3)
Quarter: 2016Q1

REPORT INFORMATION
  Report Type: Report from Study
  Country: BW (occurrence: BW)
  Receive Date: 20061218
  Receipt Date: 20160105
  Transmission Date: 20160526
  Serious: No
  Sender: FDA-Public Use
  Company Number: BW-BRISTOL-MYERS SQUIBB COMPANY-13599618

PATIENT
  Age: 0 Day
  Sex: Female
  Weight: 2.77 kg

DRUGS (3)
  1. EPIVIR [Suspect]
     Active Substance: LAMIVUDINE
     Indication: PRODUCT USED FOR UNKNOWN INDICATION
     Dosage: 300 MG, QD
     Route: 064
     Dates: start: 20030919, end: 20050409
  2. VIRAMUNE [Suspect]
     Active Substance: NEVIRAPINE
     Indication: PRODUCT USED FOR UNKNOWN INDICATION
     Dosage: 400 MG, QD
     Route: 064
     Dates: start: 20031003, end: 20050409
  3. STAVUDINE. [Suspect]
     Active Substance: STAVUDINE
     Indication: PRODUCT USED FOR UNKNOWN INDICATION
     Dosage: 60 MG, QD
     Route: 064
     Dates: start: 20030919, end: 20050409

REACTIONS (4)
  - Foetal exposure during pregnancy [Unknown]
  - Umbilical hernia [Recovered/Resolved]
  - Postmature baby [Unknown]
  - Vitiligo [Unknown]

NARRATIVE: CASE EVENT DATE: 20050409
